FAERS Safety Report 8217311-4 (Version None)
Quarter: 2012Q1

REPORT INFORMATION
  Report Type: 
  Country: None (occurrence: None)
  Receive Date: 20120319
  Receipt Date: 20120312
  Transmission Date: 20120608
  Serious: No
  Sender: FDA-Public Use
  Company Number: US-PFIZER INC-2012046774

PATIENT

DRUGS (2)
  1. TOVIAZ [Suspect]
     Indication: URINARY INCONTINENCE
     Dosage: 4 MG, UNK
     Dates: start: 20120201
  2. TOVIAZ [Suspect]
     Indication: MICTURITION URGENCY
     Dosage: 8 MG, UNK

REACTIONS (1)
  - DRUG INEFFECTIVE [None]
